FAERS Safety Report 14555702 (Version 2)
Quarter: 2018Q1

REPORT INFORMATION
  Report Type: Report from Study
  Country: None (occurrence: US)
  Receive Date: 20180221
  Receipt Date: 20180306
  Transmission Date: 20180509
  Serious: Yes (Other)
  Sender: FDA-Public Use
  Company Number: US-ABBVIE-17K-163-2139122-00

PATIENT
  Sex: Male
  Weight: 77.18 kg

DRUGS (3)
  1. HUMIRA [Suspect]
     Active Substance: ADALIMUMAB
     Route: 058
     Dates: start: 2017
  2. HUMIRA [Suspect]
     Active Substance: ADALIMUMAB
     Indication: PSORIASIS
     Dosage: DAY 1
     Route: 058
     Dates: start: 20171018, end: 20171018
  3. HUMIRA [Suspect]
     Active Substance: ADALIMUMAB
     Dosage: DAY 8
     Route: 058
     Dates: start: 20171026, end: 20171026

REACTIONS (10)
  - Hernia [Unknown]
  - Urinary tract infection [Unknown]
  - Injury associated with device [Unknown]
  - Psoriatic arthropathy [Not Recovered/Not Resolved]
  - Rash [Recovering/Resolving]
  - Skin irritation [Recovered/Resolved]
  - Pain of skin [Recovering/Resolving]
  - Gingivitis [Unknown]
  - Wrong technique in product usage process [Unknown]
  - Emotional distress [Unknown]

NARRATIVE: CASE EVENT DATE: 2017
